FAERS Safety Report 16695418 (Version 2)
Quarter: 2019Q4

REPORT INFORMATION
  Report Type: Spontaneous
  Country: US (occurrence: US)
  Receive Date: 20190813
  Receipt Date: 20191017
  Transmission Date: 20200122
  Serious: No
  Sender: FDA-Public Use
  Company Number: US-BIOGEN-2019BI00773627

PATIENT
  Age: 45 Year
  Sex: Female

DRUGS (1)
  1. TYSABRI [Suspect]
     Active Substance: NATALIZUMAB
     Indication: MULTIPLE SCLEROSIS
     Route: 065
     Dates: start: 20190807

REACTIONS (5)
  - Nervousness [Unknown]
  - Bladder disorder [Unknown]
  - Back pain [Unknown]
  - Visual impairment [Unknown]
  - Memory impairment [Unknown]

NARRATIVE: CASE EVENT DATE: 20190808
